FAERS Safety Report 25509842 (Version 3)
Quarter: 2025Q3

REPORT INFORMATION
  Report Type: Report from Study
  Country: US (occurrence: US)
  Receive Date: 20250703
  Receipt Date: 20250812
  Transmission Date: 20251021
  Serious: Yes (Other)
  Sender: ETON PHARMACEUTICALS, INC
  Company Number: US-ETON PHARMACEUTICALS, INC-2025ETO000268

PATIENT

DRUGS (9)
  1. ALKINDI SPRINKLE [Suspect]
     Active Substance: HYDROCORTISONE
     Indication: Adrenogenital syndrome
     Dosage: 1 MILLIGRAM, QD (2 MILLIGRAMS IN THE MORNING, 1 MILLIGRAM IN THE AFTERNOON, 2 MILLIGRAMS IN THE EVEN
     Route: 048
     Dates: start: 20231229
  2. ALKINDI SPRINKLE [Suspect]
     Active Substance: HYDROCORTISONE
     Dosage: 2 MILLIGRAM, BID (2 MILLIGRAMS IN THE MORNING, 1 MILLIGRAM IN THE AFTERNOON, 2 MILLIGRAMS IN THE EVE
     Route: 048
     Dates: start: 20231229
  3. ALKINDI SPRINKLE [Suspect]
     Active Substance: HYDROCORTISONE
     Dosage: 1 MILLIGRAM, QD (2 MILLIGRAMS IN THE MORNING, 1 MILLIGRAM IN THE AFTERNOON, 2 MILLIGRAMS IN THE EVEN
     Route: 048
     Dates: start: 20250617
  4. ALKINDI SPRINKLE [Suspect]
     Active Substance: HYDROCORTISONE
     Dosage: 2 MILLIGRAM, BID (2 MILLIGRAMS IN THE MORNING, 1 MILLIGRAM IN THE AFTERNOON, 2 MILLIGRAMS IN THE EVE
     Route: 048
     Dates: start: 20250617
  5. ALKINDI SPRINKLE [Suspect]
     Active Substance: HYDROCORTISONE
     Route: 048
  6. FLUDROCORTISONE [Concomitant]
     Active Substance: FLUDROCORTISONE
     Indication: Product used for unknown indication
     Dosage: 0.1 MILLIGRAM, BID
  7. CYPROHEPTADINE HYDROCHLORIDE [Concomitant]
     Active Substance: CYPROHEPTADINE HYDROCHLORIDE
     Indication: Increased appetite
     Dosage: 2.5 MG/2.5 MILLILITER, QD IN MORNING
  8. LACTULOSE [Concomitant]
     Active Substance: LACTULOSE
     Indication: Product used for unknown indication
  9. SODIUM CHLORIDE [Concomitant]
     Active Substance: SODIUM CHLORIDE
     Indication: Cerebral salt-wasting syndrome
     Dosage: 4 MILLIEQUIVALENT, QD
     Dates: end: 20250613

REACTIONS (4)
  - Choking [Unknown]
  - Infantile spitting up [Unknown]
  - Retching [Unknown]
  - Incorrect dose administered [Unknown]

NARRATIVE: CASE EVENT DATE: 20250701
